FAERS Safety Report 8842790 (Version 6)
Quarter: 2013Q2

REPORT INFORMATION
  Report Type: Spontaneous
  Country: US (occurrence: US)
  Receive Date: 20121016
  Receipt Date: 20130605
  Transmission Date: 20140414
  Serious: Yes (Death, Life-Threatening, Hospitalization, Other)
  Sender: FDA-Public Use
  Company Number: US-ELI_LILLY_AND_COMPANY-US201210003104

PATIENT
  Age: 84 Year
  Sex: Female
  Weight: 72.11 kg

DRUGS (16)
  1. FORTEO [Suspect]
     Indication: OSTEOPOROTIC FRACTURE
     Dosage: 20 UG, QD
     Route: 058
     Dates: start: 20120831
  2. FORTEO [Suspect]
     Dosage: 20 UG, QD
     Route: 058
     Dates: end: 20121020
  3. ALLOPURINOL [Concomitant]
  4. ASACOL [Concomitant]
  5. TUMS                               /00193601/ [Concomitant]
  6. LASIX                              /00032601/ [Concomitant]
  7. SYNTHYROID [Concomitant]
  8. METOPROLOL [Concomitant]
  9. ZANTAC [Concomitant]
  10. SIMVASTATIN [Concomitant]
  11. VITAMIN C [Concomitant]
  12. VITAMIN D3 [Concomitant]
  13. NORVASC [Concomitant]
  14. GLUCOSAMINE [Concomitant]
  15. VITAMIN E                            /001105/ [Concomitant]
  16. VICODIN [Concomitant]

REACTIONS (6)
  - Acute respiratory distress syndrome [Fatal]
  - Pneumonia [Unknown]
  - Depressed level of consciousness [Unknown]
  - Malaise [Unknown]
  - Dyspnoea [Unknown]
  - Multi-organ failure [Not Recovered/Not Resolved]
